FAERS Safety Report 16934775 (Version 1)
Quarter: 2019Q4

REPORT INFORMATION
  Report Type: Spontaneous
  Country: IT (occurrence: IT)
  Receive Date: 20191018
  Receipt Date: 20191018
  Transmission Date: 20200122
  Serious: Yes (Disabling)
  Sender: FDA-Public Use
  Company Number: IT-009507513-1910ITA010735

PATIENT
  Age: 26 Year
  Sex: Male
  Weight: 74 kg

DRUGS (1)
  1. PROPECIA [Suspect]
     Active Substance: FINASTERIDE
     Indication: ALOPECIA
     Dosage: 1 MILLIGRAM, QD
     Dates: start: 20090101, end: 20190501

REACTIONS (4)
  - Sexual dysfunction [Unknown]
  - Mental disorder [Unknown]
  - Abdominal discomfort [Unknown]
  - Nervous system disorder [Unknown]

NARRATIVE: CASE EVENT DATE: 20180501
